FAERS Safety Report 12285526 (Version 1)
Quarter: 2016Q2

REPORT INFORMATION
  Report Type: Spontaneous
  Country: US (occurrence: None)
  Receive Date: 20160419
  Receipt Date: 20160419
  Transmission Date: 20160815
  Serious: Yes (Life-Threatening, Hospitalization)
  Sender: FDA-Public Use
  Company Number: None

PATIENT
  Age: 64 Year
  Sex: Male
  Weight: 115.5 kg

DRUGS (1)
  1. METHOTREXATE [Suspect]
     Active Substance: METHOTREXATE
     Dosage: MG PO
     Route: 048
     Dates: start: 20160101, end: 20160101

REACTIONS (2)
  - Respiratory depression [None]
  - Dyspnoea [None]

NARRATIVE: CASE EVENT DATE: 20160101
